FAERS Safety Report 8575017-6 (Version None)
Quarter: 2012Q3

REPORT INFORMATION
  Report Type: 
  Country: None (occurrence: None)
  Receive Date: 20120807
  Receipt Date: 20120727
  Transmission Date: 20120928
  Serious: Yes (Hospitalization)
  Sender: FDA-Public Use
  Company Number: JP-ELI_LILLY_AND_COMPANY-JP201206001039

PATIENT
  Age: 77 Year
  Sex: Female

DRUGS (3)
  1. BUPRENORPHINE [Concomitant]
     Route: 062
  2. ALFAROL [Concomitant]
     Route: 048
  3. FORTEO [Suspect]
     Dosage: UNK
     Route: 058
     Dates: start: 20120201

REACTIONS (2)
  - NAUSEA [None]
  - DECREASED APPETITE [None]
